FAERS Safety Report 4304264-4 (Version None)
Quarter: 2004Q1

REPORT INFORMATION
  Report Type: 
  Country: None (occurrence: None)
  Receive Date: 20040225
  Receipt Date: 20040218
  Transmission Date: 20041129
  Serious: Yes (Other)
  Sender: FDA-Public Use
  Company Number: WAES 0402USA01553

PATIENT
  Age: 51 Year
  Sex: Female

DRUGS (2)
  1. EPINEPHRINE HYDROCHLORIDE [Concomitant]
     Indication: SMALL INTESTINAL HAEMORRHAGE
     Route: 051
     Dates: start: 20010416, end: 20010416
  2. AQUAMEPHYTON [Suspect]
     Indication: WOUND HAEMORRHAGE
     Route: 058
     Dates: start: 20010420, end: 20010420

REACTIONS (1)
  - WOUND HAEMORRHAGE [None]
